FAERS Safety Report 21329339 (Version 1)
Quarter: 2022Q3

REPORT INFORMATION
  Report Type: Spontaneous
  Country: US (occurrence: None)
  Receive Date: 20220913
  Receipt Date: 20220913
  Transmission Date: 20221027
  Serious: No
  Sender: FDA-Public Use
  Company Number: None

PATIENT
  Age: 35 Year
  Sex: Female
  Weight: 57 kg

DRUGS (1)
  1. NIRMATRELVIR\RITONAVIR [Suspect]
     Active Substance: NIRMATRELVIR\RITONAVIR
     Dosage: 150MG/100MG BID PO? ?
     Route: 048
     Dates: start: 20220903, end: 20220903

REACTIONS (6)
  - Nausea [None]
  - Vomiting [None]
  - Anxiety [None]
  - Claustrophobia [None]
  - Hypoaesthesia [None]
  - Taste disorder [None]

NARRATIVE: CASE EVENT DATE: 20220903
